FAERS Safety Report 4746942-9 (Version None)
Quarter: 2005Q3

REPORT INFORMATION
  Report Type: 
  Country: None (occurrence: None)
  Receive Date: 20050815
  Receipt Date: 20050803
  Transmission Date: 20060218
  Serious: Yes (Hospitalization)
  Sender: FDA-Public Use
  Company Number: US_991130737

PATIENT
  Age: 42 Year
  Sex: Female
  Weight: 91 kg

DRUGS (6)
  1. HUMULIN N [Suspect]
     Indication: DIABETES MELLITUS
     Dosage: 35 U/1 DAY
     Dates: start: 19970101, end: 20050201
  2. HUMULIN N [Suspect]
     Indication: HYPERLIPIDAEMIA
     Dosage: 35 U/1 DAY
     Dates: start: 19970101, end: 20050201
  3. HUMULIN U [Suspect]
     Indication: DIABETES MELLITUS
     Dates: start: 20050201
  4. ACTOS /USA/ (PIOGLITAZONE HYDROCHLORIDE) [Concomitant]
  5. LANTUS [Concomitant]
  6. LIPITOR [Concomitant]

REACTIONS (13)
  - BURNING SENSATION [None]
  - CONDITION AGGRAVATED [None]
  - HYPERLIPIDAEMIA [None]
  - HYPERSENSITIVITY [None]
  - HYPERTRIGLYCERIDAEMIA [None]
  - INJECTION SITE ERYTHEMA [None]
  - INJECTION SITE IRRITATION [None]
  - INJECTION SITE PAIN [None]
  - NERVE INJURY [None]
  - PAIN [None]
  - PANCREATITIS [None]
  - PHARMACEUTICAL PRODUCT COMPLAINT [None]
  - TREATMENT NONCOMPLIANCE [None]
